FAERS Safety Report 5824977-2 (Version None)
Quarter: 2008Q3

REPORT INFORMATION
  Report Type: 
  Country: None (occurrence: None)
  Receive Date: 20080728
  Receipt Date: 20080717
  Transmission Date: 20090109
  Serious: Yes (Hospitalization, Other)
  Sender: FDA-Public Use
  Company Number: US-PFIZER INC-2008060004

PATIENT
  Sex: Female
  Weight: 74.8 kg

DRUGS (10)
  1. XANAX XR [Suspect]
     Indication: ANXIETY
     Dates: start: 20080508, end: 20080508
  2. XANAX [Suspect]
     Indication: ANXIETY
     Dosage: DAILY DOSE:3MG
  3. XANAX [Suspect]
     Indication: NERVOUSNESS
  4. CYMBALTA [Concomitant]
  5. SYNTHROID [Concomitant]
  6. VOLTAREN [Concomitant]
  7. NEXIUM [Concomitant]
  8. FLONASE [Concomitant]
  9. METOPROLOL TARTRATE [Concomitant]
  10. LIPITOR [Concomitant]

REACTIONS (6)
  - ANXIETY [None]
  - FACIAL BONES FRACTURE [None]
  - FOOT FRACTURE [None]
  - HEAD INJURY [None]
  - LOSS OF CONSCIOUSNESS [None]
  - ROAD TRAFFIC ACCIDENT [None]
